FAERS Safety Report 18191370 (Version 6)
Quarter: 2020Q4

REPORT INFORMATION
  Report Type: Spontaneous
  Country: US (occurrence: US)
  Receive Date: 20200824
  Receipt Date: 20201113
  Transmission Date: 20210113
  Serious: Yes (Other)
  Sender: FDA-Public Use
  Company Number: US-009507513-2008USA010925

PATIENT
  Age: 62 Year
  Sex: Female
  Weight: 59.41 kg

DRUGS (4)
  1. FOSAMAX [Suspect]
     Active Substance: ALENDRONATE SODIUM
     Indication: OSTEOPOROSIS
     Dosage: 70 MILLIGRAM, QD
     Route: 048
     Dates: start: 2003, end: 20100928
  2. ESTRADIOL. [Suspect]
     Active Substance: ESTRADIOL
     Dosage: 2 MILLIGRAM
     Dates: start: 20070727
  3. ESTRADIOL. [Suspect]
     Active Substance: ESTRADIOL
     Indication: OSTEOPOROSIS
     Dosage: 1 UNK
     Dates: start: 2005
  4. ESTRADIOL. [Suspect]
     Active Substance: ESTRADIOL
     Dosage: 1 MILLIGRAM, QD

REACTIONS (12)
  - Osteopenia [Unknown]
  - Spinal operation [Unknown]
  - Limb operation [Unknown]
  - Femoral neck fracture [Recovered/Resolved with Sequelae]
  - Rash [Unknown]
  - Endometrial ablation [Unknown]
  - Fall [Recovered/Resolved with Sequelae]
  - Hip fracture [Unknown]
  - Femur fracture [Recovered/Resolved with Sequelae]
  - Knee arthroplasty [Unknown]
  - Fatigue [Unknown]
  - Essential tremor [Unknown]

NARRATIVE: CASE EVENT DATE: 20100902
